FAERS Safety Report 5995701-8 (Version None)
Quarter: 2008Q4

REPORT INFORMATION
  Report Type: 
  Country: None (occurrence: None)
  Receive Date: 20081212
  Receipt Date: 20081205
  Transmission Date: 20090506
  Serious: Yes (Life-Threatening, Hospitalization)
  Sender: FDA-Public Use
  Company Number: FR-WYE-G02081308

PATIENT
  Sex: Male
  Weight: 10 kg

DRUGS (3)
  1. REFACTO [Suspect]
     Indication: FACTOR VIII DEFICIENCY
     Dosage: 500 IU/INJ WITH A TOTAL DOSE OF 4500 IU
     Route: 042
     Dates: start: 20080723, end: 20080727
  2. REFACTO [Suspect]
     Route: 042
     Dates: start: 20080829
  3. REFACTO [Suspect]
     Route: 042
     Dates: start: 20080728, end: 20080828

REACTIONS (5)
  - COAGULATION FACTOR VIII LEVEL DECREASED [None]
  - DRUG INEFFECTIVE [None]
  - FACTOR VIII INHIBITION [None]
  - INFUSION SITE HAEMATOMA [None]
  - SPONTANEOUS HAEMATOMA [None]
